FAERS Safety Report 4630046-X (Version None)
Quarter: 2005Q2

REPORT INFORMATION
  Report Type: 
  Country: None (occurrence: None)
  Receive Date: 20050408
  Receipt Date: 20050331
  Transmission Date: 20051028
  Serious: Yes (Hospitalization)
  Sender: FDA-Public Use
  Company Number: DE-ROCHE-400242

PATIENT
  Age: 73 Year
  Sex: Female

DRUGS (3)
  1. INTERFERON ALFA-2A [Suspect]
     Indication: METASTATIC MALIGNANT MELANOMA
     Dosage: GIVEN ON DAYS 11 AND 18 OF EACH 28-DAY CYCLE.
     Route: 058
     Dates: start: 20050201
  2. DACARBAZINE [Suspect]
     Indication: METASTATIC MALIGNANT MELANOMA
     Dosage: GIVEN ON DAY 1 OF EACH 28-DAY CYCLE.
     Route: 042
     Dates: start: 20050201
  3. THYMOSIN ALPHA 1 [Suspect]
     Indication: METASTATIC MALIGNANT MELANOMA
     Dosage: ^1.6 OR 3.2MG ON DAYS 8-11 AND 15-18 IN A [28-DAY] CYCLE^.
     Route: 058
     Dates: start: 20050201

REACTIONS (1)
  - PULMONARY EMBOLISM [None]
